FAERS Safety Report 15202346 (Version 1)
Quarter: 2018Q3

REPORT INFORMATION
  Report Type: Spontaneous
  Country: US (occurrence: US)
  Receive Date: 20180627
  Receipt Date: 20180627
  Transmission Date: 20181010
  Serious: Yes (Other)
  Sender: FDA-Public Use
  Company Number: None

PATIENT
  Age: 33 Year
  Sex: Female
  Weight: 90 kg

DRUGS (4)
  1. BYDUREON BCISE [Suspect]
     Active Substance: EXENATIDE
     Dosage: ?          QUANTITY:1 INJECTION(S);?
     Route: 030
     Dates: start: 20180626
  2. INHALER [Concomitant]
     Active Substance: UNSPECIFIED INGREDIENT
  3. DIABETIC PEN [Concomitant]
  4. STROKE MEDECINE [Concomitant]

REACTIONS (3)
  - Cerebrovascular accident [None]
  - Myocardial infarction [None]
  - Joint instability [None]

NARRATIVE: CASE EVENT DATE: 20180626
